FAERS Safety Report 18650006 (Version 1)
Quarter: 2020Q4

REPORT INFORMATION
  Report Type: Spontaneous
  Country: FR (occurrence: FR)
  Receive Date: 20201222
  Receipt Date: 20201222
  Transmission Date: 20210114
  Serious: Yes (Hospitalization)
  Sender: FDA-Public Use
  Company Number: NVSC2020FR332364

PATIENT
  Age: 14 Year
  Sex: Female
  Weight: 59.6 kg

DRUGS (8)
  1. KETAMINE [Concomitant]
     Active Substance: KETAMINE
     Indication: ANAESTHESIA
     Dosage: 30 MG (TOTAL)
     Route: 042
     Dates: start: 20201124, end: 20201124
  2. PROPOFOL. [Concomitant]
     Active Substance: PROPOFOL
     Indication: ANAESTHESIA
     Dosage: 2261 MG, QD
     Route: 042
     Dates: start: 20201124, end: 20201124
  3. CEFAZOLINE [Concomitant]
     Active Substance: CEFAZOLIN SODIUM
     Indication: ANTIBIOTIC PROPHYLAXIS
     Dosage: 2 G (TOTAL)
     Route: 042
     Dates: start: 20201124, end: 20201124
  4. ATRACURIUM [Concomitant]
     Active Substance: ATRACURIUM
     Indication: ANAESTHESIA
     Dosage: 50 MG (TOTAL)
     Route: 042
     Dates: start: 20201124, end: 20201124
  5. LIDOCAINE. [Concomitant]
     Active Substance: LIDOCAINE
     Indication: ANAESTHESIA
     Dosage: 80 MG (TOTAL)
     Route: 042
     Dates: start: 20201124, end: 20201124
  6. REMIFENTANIL [Concomitant]
     Active Substance: REMIFENTANIL
     Indication: ANAESTHESIA
     Dosage: 1460 UG, QD
     Route: 042
     Dates: start: 20201124, end: 20201124
  7. VANCOMYCINE SANDOZ [Suspect]
     Active Substance: VANCOMYCIN
     Indication: ANTIBIOTIC PROPHYLAXIS
     Dosage: 1770 MG {TOTAL}
     Route: 042
     Dates: start: 20201124, end: 20201124
  8. DEXAMETHASONE. [Concomitant]
     Active Substance: DEXAMETHASONE
     Indication: INFLAMMATION
     Dosage: 8 MG (TOTAL)
     Route: 042
     Dates: start: 20201124, end: 20201124

REACTIONS (3)
  - Tachycardia [Recovered/Resolved]
  - Erythema [Recovered/Resolved]
  - Hypotension [Recovered/Resolved]

NARRATIVE: CASE EVENT DATE: 20201124
